FAERS Safety Report 5143375-0 (Version None)
Quarter: 2006Q4

REPORT INFORMATION
  Report Type: 
  Country: None (occurrence: None)
  Receive Date: 20061030
  Receipt Date: 20061018
  Transmission Date: 20070319
  Serious: Yes (Other)
  Sender: FDA-Public Use
  Company Number: 2006127521

PATIENT
  Age: 41 Year
  Sex: Female

DRUGS (2)
  1. PHENYTOIN SODIUM [Suspect]
     Indication: EPILEPSY
     Dosage: ORAL
     Route: 048
     Dates: start: 20060703, end: 20060726
  2. VALPROIC ACID [Concomitant]

REACTIONS (2)
  - DRUG HYPERSENSITIVITY [None]
  - TRANSAMINASES INCREASED [None]
